FAERS Safety Report 11935355 (Version 13)
Quarter: 2019Q2

REPORT INFORMATION
  Report Type: Spontaneous
  Country: US (occurrence: US)
  Receive Date: 20160121
  Receipt Date: 20190517
  Transmission Date: 20190711
  Serious: Yes (Other)
  Sender: FDA-Public Use
  Company Number: US-PFIZER INC-2016017803

PATIENT
  Age: 74 Year
  Sex: Male
  Weight: 124 kg

DRUGS (4)
  1. BENEFIX [Suspect]
     Active Substance: COAGULATION FACTOR IX RECOMBINANT HUMAN\ISOPROPYL ALCOHOL
     Dosage: 4000 IU, 1X/DAY (INTRAVENOUS ONCE A DAY FOLLOWING PROCEDURE AS INSTRUCTED BY HTC)
     Route: 042
  2. BENEFIX [Suspect]
     Active Substance: COAGULATION FACTOR IX RECOMBINANT HUMAN\ISOPROPYL ALCOHOL
     Indication: FACTOR IX DEFICIENCY
     Dosage: UNK
  3. BENEFIX [Suspect]
     Active Substance: COAGULATION FACTOR IX RECOMBINANT HUMAN\ISOPROPYL ALCOHOL
     Indication: HAEMOPHILIA
     Dosage: 5000 IU, UNK (5000 INTERNATIONAL UNIT (S) INTRAVENOUS ONCE 20-30 MINUTES TO EGD)
     Route: 042
  4. BENEFIX [Suspect]
     Active Substance: COAGULATION FACTOR IX RECOMBINANT HUMAN\ISOPROPYL ALCOHOL
     Dosage: 2 DF, UNK (HE USED UP HIS 2 DOSES FOR THE SURGERY)

REACTIONS (6)
  - Pruritus generalised [Unknown]
  - Tooth disorder [Unknown]
  - Post procedural haemorrhage [Unknown]
  - Cardiac disorder [Unknown]
  - Oral disorder [Unknown]
  - Memory impairment [Unknown]

NARRATIVE: CASE EVENT DATE: 201504
